FAERS Safety Report 9187488 (Version 1)
Quarter: 2013Q1

REPORT INFORMATION
  Report Type: Spontaneous
  Country: US (occurrence: US)
  Receive Date: 20130325
  Receipt Date: 20130325
  Transmission Date: 20140127
  Serious: No
  Sender: FDA-Public Use
  Company Number: US-JNJFOC-20130111089

PATIENT
  Age: 15 Year
  Sex: Female

DRUGS (5)
  1. INVEGA SUSTENNA [Suspect]
     Indication: BIPOLAR DISORDER
     Dosage: A SECOND DOSE
     Route: 030
     Dates: start: 20130109, end: 20130109
  2. INVEGA SUSTENNA [Suspect]
     Indication: BIPOLAR DISORDER
     Route: 030
     Dates: start: 20130103, end: 20130103
  3. INVEGA [Suspect]
     Indication: BIPOLAR DISORDER
     Dosage: 3 MG OR 6 MG, FOR TWO WEEKS
     Route: 048
  4. ZYRTEC [Concomitant]
     Indication: MULTIPLE ALLERGIES
     Route: 065
  5. VENTOLIN [Concomitant]
     Indication: ASTHMA
     Route: 065

REACTIONS (1)
  - Hyperprolactinaemia [Unknown]
